FAERS Safety Report 7438165-X (Version None)
Quarter: 2011Q2

REPORT INFORMATION
  Report Type: 
  Country: None (occurrence: None)
  Receive Date: 20110421
  Receipt Date: 20110421
  Transmission Date: 20111010
  Serious: Yes (Death)
  Sender: FDA-Public Use
  Company Number: None

PATIENT
  Age: 74 Year
  Sex: Male

DRUGS (10)
  1. TEMAZ [Concomitant]
  2. REVLIMID [Suspect]
     Indication: MULTIPLE MYELOMA
     Dosage: 15MG DAILY ORALLY
     Route: 048
     Dates: start: 20100101
  3. REVLIMID [Suspect]
     Indication: MULTIPLE MYELOMA
     Dosage: 15MG DAILY ORALLY
     Route: 048
     Dates: start: 20090601, end: 20090801
  4. REVLIMID [Suspect]
     Indication: MULTIPLE MYELOMA
     Dosage: 15MG DAILY ORALLY
     Route: 048
     Dates: start: 20100801
  5. LISINOPRIL [Concomitant]
  6. WARFARIN [Concomitant]
  7. ACYCLOVIR [Concomitant]
  8. DECADRON [Concomitant]
  9. OMEPRAZOLE [Concomitant]
  10. B-12 SOLUTION [Concomitant]

REACTIONS (1)
  - BLOOD COUNT ABNORMAL [None]
